FAERS Safety Report 13177459 (Version 1)
Quarter: 2017Q1

REPORT INFORMATION
  Report Type: Report from Study
  Country: US (occurrence: US)
  Receive Date: 20170201
  Receipt Date: 20170201
  Transmission Date: 20170428
  Serious: No
  Sender: FDA-Public Use
  Company Number: US-EXELIXIS-CABO-16006322

PATIENT
  Sex: Male

DRUGS (6)
  1. COMETRIQ [Suspect]
     Active Substance: CABOZANTINIB S-MALATE
     Dosage: 60 MG, QD
     Route: 048
     Dates: start: 201605
  2. MULTI VITAMIN [Concomitant]
     Active Substance: VITAMINS
  3. COMETRIQ [Suspect]
     Active Substance: CABOZANTINIB S-MALATE
     Indication: RENAL CANCER
     Dosage: 60 MG, QD
     Route: 048
     Dates: start: 20160401, end: 201605
  4. LEVOTHYROXINE. [Concomitant]
     Active Substance: LEVOTHYROXINE
  5. ATORVASTATIN [Concomitant]
     Active Substance: ATORVASTATIN
  6. FENOFIBRATE. [Concomitant]
     Active Substance: FENOFIBRATE

REACTIONS (13)
  - Skin ulcer [Recovering/Resolving]
  - Fatigue [Not Recovered/Not Resolved]
  - Product packaging issue [Unknown]
  - Memory impairment [Unknown]
  - Arthralgia [Unknown]
  - Erythema [Unknown]
  - Abasia [Recovering/Resolving]
  - Off label use [Unknown]
  - Blister [Not Recovered/Not Resolved]
  - Skin exfoliation [Unknown]
  - Dysphonia [Unknown]
  - Pain in extremity [Not Recovered/Not Resolved]
  - Myalgia [Unknown]
